FAERS Safety Report 7658678-5 (Version None)
Quarter: 2011Q3

REPORT INFORMATION
  Report Type: 
  Country: None (occurrence: None)
  Receive Date: 20110805
  Receipt Date: 20110726
  Transmission Date: 20111222
  Serious: Yes (Hospitalization, Disabling, Other)
  Sender: FDA-Public Use
  Company Number: US-EISAI INC-E7272-00109-CLI-US

PATIENT
  Sex: Male
  Weight: 86 kg

DRUGS (6)
  1. PROLEUKIN [Suspect]
     Dosage: 9 MIU
     Route: 058
     Dates: start: 20110415, end: 20110424
  2. PROLEUKIN [Suspect]
     Indication: MALIGNANT LYMPHOID NEOPLASM
     Dosage: 4.5 MIU
     Route: 058
     Dates: start: 20110426, end: 20110426
  3. CYTOXAN [Concomitant]
     Indication: MALIGNANT LYMPHOID NEOPLASM
     Route: 042
     Dates: start: 20110409, end: 20110409
  4. RITUXIMAB [Concomitant]
     Indication: MALIGNANT LYMPHOID NEOPLASM
     Route: 042
     Dates: start: 20110408, end: 20110410
  5. ONTAK [Suspect]
     Indication: MALIGNANT LYMPHOID NEOPLASM
     Route: 041
     Dates: start: 20110414, end: 20110414
  6. PENTOSTATIN [Suspect]
     Indication: MALIGNANT LYMPHOID NEOPLASM
     Route: 042
     Dates: start: 20110408, end: 20110428

REACTIONS (1)
  - THROMBOTIC THROMBOCYTOPENIC PURPURA [None]
